FAERS Safety Report 4872790-5 (Version None)
Quarter: 2006Q1

REPORT INFORMATION
  Report Type: 
  Country: None (occurrence: None)
  Receive Date: 20060103
  Receipt Date: 20051227
  Transmission Date: 20060701
  Serious: Yes (Death, Hospitalization)
  Sender: FDA-Public Use
  Company Number: 200514461GDS

PATIENT
  Age: 6 Month

DRUGS (1)
  1. ASPIRIN [Suspect]

REACTIONS (14)
  - BLOOD LACTATE DEHYDROGENASE INCREASED [None]
  - CSF CELL COUNT INCREASED [None]
  - CSF PROTEIN INCREASED [None]
  - CSF TEST ABNORMAL [None]
  - ENCEPHALOPATHY [None]
  - GRAND MAL CONVULSION [None]
  - HAEMATOCRIT DECREASED [None]
  - HAEMOGLOBIN DECREASED [None]
  - NECROSIS [None]
  - PLATELET COUNT INCREASED [None]
  - PYREXIA [None]
  - RESPIRATORY ARREST [None]
  - WHITE BLOOD CELL COUNT INCREASED [None]
  - XANTHOCHROMIA [None]
